FAERS Safety Report 9130457 (Version 2)
Quarter: 2013Q2

REPORT INFORMATION
  Report Type: Spontaneous
  Country: US (occurrence: US)
  Receive Date: 20130301
  Receipt Date: 20130424
  Transmission Date: 20140414
  Serious: No
  Sender: FDA-Public Use
  Company Number: US-009507513-1302USA013746

PATIENT
  Age: 38 Year
  Sex: Female

DRUGS (6)
  1. SAPHRIS [Suspect]
     Indication: BIPOLAR DISORDER
     Dosage: 5 MG, QD
     Route: 060
     Dates: start: 20130207, end: 20130208
  2. LORAZEPAM [Concomitant]
  3. AMBIEN [Concomitant]
  4. SEROQUEL [Concomitant]
  5. LAMICTAL [Concomitant]
  6. ATIVAN [Concomitant]
     Dosage: UNK

REACTIONS (5)
  - Hyperhidrosis [Recovered/Resolved]
  - Oral discomfort [Recovered/Resolved]
  - Oral discomfort [Recovered/Resolved]
  - Heart rate increased [Recovered/Resolved]
  - Heart rate increased [Recovered/Resolved]
